FAERS Safety Report 7630975 (Version 3)
Quarter: 2018Q3

REPORT INFORMATION
  Report Type: Spontaneous
  Country: IT (occurrence: IT)
  Receive Date: 20101015
  Receipt Date: 20180816
  Transmission Date: 20181010
  Serious: Yes (Hospitalization)
  Sender: FDA-Public Use
  Company Number: IT-PFIZER INC-2010127201

PATIENT
  Age: 66 Year
  Sex: Male

DRUGS (6)
  1. ZOMETA [Concomitant]
     Active Substance: ZOLEDRONIC ACID
     Dosage: 3.5 MG, UNK
     Route: 048
     Dates: start: 20091014
  2. CALCIUM SANDOZ C [Concomitant]
     Dosage: 1000 MG, UNK
     Route: 048
     Dates: start: 20091014
  3. SUTENT [Suspect]
     Active Substance: SUNITINIB MALATE
     Indication: RENAL CANCER
     Dosage: 37.5 MG, CYCLIC
     Route: 048
     Dates: start: 20090929, end: 20100511
  4. OXYCODONE HYDROCHLORIDE. [Concomitant]
     Active Substance: OXYCODONE HYDROCHLORIDE
     Dosage: 20 MG, UNK
     Route: 048
     Dates: start: 20091111
  5. METFORMIN HYDROCHLORIDE. [Concomitant]
     Active Substance: METFORMIN HYDROCHLORIDE
     Dosage: 500 MG, UNK
     Route: 048
     Dates: start: 20091014
  6. XANAX [Concomitant]
     Active Substance: ALPRAZOLAM
     Dosage: 20 DROPS
     Route: 048
     Dates: start: 20091014

REACTIONS (2)
  - Hypothyroidism [Recovered/Resolved]
  - Gastric ulcer [Recovered/Resolved]

NARRATIVE: CASE EVENT DATE: 20100511
